FAERS Safety Report 8103075-1 (Version None)
Quarter: 2012Q1

REPORT INFORMATION
  Report Type: 
  Country: None (occurrence: None)
  Receive Date: 20120201
  Receipt Date: 20120201
  Transmission Date: 20120608
  Serious: Yes (Life-Threatening, Hospitalization)
  Sender: FDA-Public Use
  Company Number: None

PATIENT
  Age: 50 Year
  Sex: Female
  Weight: 56.699 kg

DRUGS (1)
  1. CEPACOL [Suspect]
     Indication: OROPHARYNGEAL PAIN
     Dosage: ONE SHORT SPRAY THROAT
     Route: 048
     Dates: start: 20090907, end: 20090907

REACTIONS (7)
  - SWELLING FACE [None]
  - DYSPNOEA [None]
  - URTICARIA [None]
  - TEMPORAL ARTERITIS [None]
  - ANAPHYLACTIC REACTION [None]
  - SWOLLEN TONGUE [None]
  - DYSPHAGIA [None]
